FAERS Safety Report 21751416 (Version 1)
Quarter: 2022Q4

REPORT INFORMATION
  Report Type: Spontaneous
  Country: FR (occurrence: FR)
  Receive Date: 20221220
  Receipt Date: 20221220
  Transmission Date: 20230112
  Serious: Yes (Hospitalization)
  Sender: FDA-Public Use
  Company Number: FR-AstraZeneca-2022A409984

PATIENT
  Age: 0 Year
  Sex: Male
  Weight: 5 kg

DRUGS (2)
  1. SYNAGIS [Suspect]
     Active Substance: PALIVIZUMAB
     Indication: Antiviral prophylaxis
     Dates: start: 20221117
  2. SYNAGIS [Suspect]
     Active Substance: PALIVIZUMAB
     Dosage: FORMULATION: SOLUTION FOR INJECTION
     Dates: start: 20221014

REACTIONS (1)
  - Bronchiolitis [Recovered/Resolved]

NARRATIVE: CASE EVENT DATE: 20221101
